FAERS Safety Report 16734271 (Version 1)
Quarter: 2019Q3

REPORT INFORMATION
  Report Type: Spontaneous
  Country: US (occurrence: US)
  Receive Date: 20190823
  Receipt Date: 20190823
  Transmission Date: 20191005
  Serious: No
  Sender: FDA-Public Use
  Company Number: US-PAREXEL-2019US000072

PATIENT

DRUGS (5)
  1. METFORMIN ER [Concomitant]
     Active Substance: METFORMIN HYDROCHLORIDE
     Dosage: 750 MG, UNK
  2. REPATHA [Concomitant]
     Active Substance: EVOLOCUMAB
  3. LANTUS [Concomitant]
     Active Substance: INSULIN GLARGINE
  4. ELIGARD [Suspect]
     Active Substance: LEUPROLIDE ACETATE
     Indication: PROSTATE CANCER
     Dosage: 22.5 MG, Q3MONTHS
     Route: 058
     Dates: start: 20181220
  5. ISOSORBIDE. [Concomitant]
     Active Substance: ISOSORBIDE

REACTIONS (4)
  - Needle issue [Unknown]
  - Underdose [Unknown]
  - Wrong technique in product usage process [Unknown]
  - Product leakage [Unknown]

NARRATIVE: CASE EVENT DATE: 20190103
